FAERS Safety Report 4532337-X (Version None)
Quarter: 2004Q4

REPORT INFORMATION
  Report Type: 
  Country: None (occurrence: None)
  Receive Date: 20041206
  Receipt Date: 20041026
  Transmission Date: 20050328
  Serious: No
  Sender: FDA-Public Use
  Company Number: US_0411107671

PATIENT
  Age: 41 Year

DRUGS (5)
  1. CYMBALTA [Suspect]
  2. ZYPREXA [Suspect]
  3. HALDOL [Concomitant]
  4. DEPAKOTE [Concomitant]
  5. KLONOPIN [Concomitant]

REACTIONS (1)
  - HYPOTENSION [None]
